FAERS Safety Report 12906024 (Version 1)
Quarter: 2016Q4

REPORT INFORMATION
  Report Type: Spontaneous
  Country: US (occurrence: US)
  Receive Date: 20161103
  Receipt Date: 20161103
  Transmission Date: 20170207
  Serious: No
  Sender: FDA-Public Use
  Company Number: US-BIOGEN-2016BI00311190

PATIENT
  Sex: Female

DRUGS (2)
  1. AVONEX [Suspect]
     Active Substance: INTERFERON BETA-1A
     Indication: MULTIPLE SCLEROSIS
     Route: 065
     Dates: start: 19970101
  2. AVONEX [Suspect]
     Active Substance: INTERFERON BETA-1A
     Route: 065
     Dates: start: 20081029

REACTIONS (6)
  - Mobility decreased [Recovered/Resolved with Sequelae]
  - Tremor [Unknown]
  - Influenza like illness [Unknown]
  - Injury associated with device [Unknown]
  - General symptom [Not Recovered/Not Resolved]
  - Needle issue [Not Recovered/Not Resolved]
